FAERS Safety Report 8413614-9 (Version None)
Quarter: 2012Q2

REPORT INFORMATION
  Report Type: 
  Country: None (occurrence: None)
  Receive Date: 20120605
  Receipt Date: 20120531
  Transmission Date: 20120825
  Serious: Yes (Hospitalization)
  Sender: FDA-Public Use
  Company Number: US-ACTELION-A-NJ2012-63360

PATIENT

DRUGS (3)
  1. COUMADIN [Concomitant]
  2. VENTAVIS [Suspect]
     Indication: PULMONARY ARTERIAL HYPERTENSION
     Dosage: UNK
     Route: 055
     Dates: start: 20100525
  3. ADCIRCA [Concomitant]

REACTIONS (3)
  - INGUINAL HERNIA REPAIR [None]
  - CATARACT OPERATION [None]
  - INGUINAL HERNIA [None]
